FAERS Safety Report 9972551 (Version 1)
Quarter: 2014Q1

REPORT INFORMATION
  Report Type: Report from Study
  Country: US (occurrence: US)
  Receive Date: 20140306
  Receipt Date: 20140306
  Transmission Date: 20141002
  Serious: No
  Sender: FDA-Public Use
  Company Number: US-ABBVIE-13P-163-1154030-00

PATIENT
  Age: 47 Year
  Sex: Female

DRUGS (5)
  1. HUMIRA [Suspect]
     Indication: RHEUMATOID ARTHRITIS
     Dates: start: 20130828
  2. METHOTREXATE [Concomitant]
     Indication: RHEUMATOID ARTHRITIS
     Dosage: 4 PILLS 2 TIMES A WEEK
  3. PREDNISONE [Concomitant]
     Indication: RHEUMATOID ARTHRITIS
  4. VITAMIN B COMPLEX [Concomitant]
     Indication: VITAMIN SUPPLEMENTATION
     Dosage: DAILY
  5. JUICE PLUS [Concomitant]
     Indication: VITAMIN SUPPLEMENTATION

REACTIONS (1)
  - Vulvovaginal mycotic infection [Recovered/Resolved]
